FAERS Safety Report 26037983 (Version 1)
Quarter: 2025Q4

REPORT INFORMATION
  Report Type: Report from Study
  Country: EU (occurrence: EU)
  Receive Date: 20251112
  Receipt Date: 20251112
  Transmission Date: 20260117
  Serious: Yes (Hospitalization)
  Sender: ABBVIE
  Company Number: EU-ABBVIE-6540475

PATIENT
  Age: 64 Year
  Sex: Male
  Weight: 88 kg

DRUGS (21)
  1. FOSCARBIDOPA\FOSLEVODOPA [Suspect]
     Active Substance: FOSCARBIDOPA\FOSLEVODOPA
     Indication: Parkinson^s disease
     Dosage: DURATION OF DAILY INFUSION LESS THAN 24 HOURS. ?BASE RATE 0.90 ML/H DURATION 18. HOURS; MORNING A...
     Route: 058
     Dates: start: 20250616
  2. FOSCARBIDOPA\FOSLEVODOPA [Suspect]
     Active Substance: FOSCARBIDOPA\FOSLEVODOPA
     Dosage: DURATION OF DAILY INFUSION LESS THAN 24 HOURS. ?BASE RATE 0.85 ML/H DURATION 17. HOURS; MORNING A...
     Route: 058
     Dates: start: 20250625, end: 20250626
  3. FOSCARBIDOPA\FOSLEVODOPA [Suspect]
     Active Substance: FOSCARBIDOPA\FOSLEVODOPA
     Dosage: DURATION OF DAILY INFUSION LESS THAN 24 HOURS. ?BASE RATE 0.87 ML/H DURATION 17. HOURS; MORNING A...
     Route: 058
     Dates: start: 20250626, end: 20250627
  4. FOSCARBIDOPA\FOSLEVODOPA [Suspect]
     Active Substance: FOSCARBIDOPA\FOSLEVODOPA
     Dosage: DURATION OF DAILY INFUSION LESS THAN 24 HOURS. ?BASE RATE 0.89 ML/H DURATION 17. HOURS; MORNING A...
     Route: 058
     Dates: start: 20250627, end: 20250702
  5. FOSCARBIDOPA\FOSLEVODOPA [Suspect]
     Active Substance: FOSCARBIDOPA\FOSLEVODOPA
     Dosage: DURATION OF DAILY INFUSION LESS THAN 24 HOURS. ?BASE RATE 0.90 ML/H DURATION 18. HOURS; MORNING A...
     Route: 058
     Dates: start: 20250703, end: 20250704
  6. FOSCARBIDOPA\FOSLEVODOPA [Suspect]
     Active Substance: FOSCARBIDOPA\FOSLEVODOPA
     Dosage: DURATION OF DAILY INFUSION LESS THAN 24 HOURS. ?BASE RATE 0.92 ML/H DURATION 17. HOURS; MORNING A...
     Route: 058
     Dates: start: 20250704, end: 20250705
  7. FOSCARBIDOPA\FOSLEVODOPA [Suspect]
     Active Substance: FOSCARBIDOPA\FOSLEVODOPA
     Dosage: DURATION OF DAILY INFUSION LESS THAN 24 HOURS. ?BASE RATE 0.94 ML/H DURATION 17. HOURS; MORNING A...
     Route: 058
     Dates: start: 20250705
  8. Previscan [Concomitant]
     Indication: Product used for unknown indication
  9. PLAQUENIL [Concomitant]
     Active Substance: HYDROXYCHLOROQUINE SULFATE
     Indication: Product used for unknown indication
  10. AMANTADINE HYDROCHLORIDE [Concomitant]
     Active Substance: AMANTADINE HYDROCHLORIDE
     Indication: Product used for unknown indication
     Dosage: CONTINUOUS TREATMENT
     Dates: start: 20250620, end: 20250620
  11. BENSERAZIDE HYDROCHLORIDE\LEVODOPA [Concomitant]
     Active Substance: BENSERAZIDE HYDROCHLORIDE\LEVODOPA
     Indication: Product used for unknown indication
     Dosage: MODOPAR DISP 125?CONTINUOUS TREATMENT
     Dates: start: 20250620, end: 20250625
  12. BENSERAZIDE HYDROCHLORIDE\LEVODOPA [Concomitant]
     Active Substance: BENSERAZIDE HYDROCHLORIDE\LEVODOPA
     Indication: Product used for unknown indication
     Dosage: MODOPAR DISP 125?CONTINUOUS TREATMENT
     Dates: start: 20250625, end: 20250702
  13. BENSERAZIDE HYDROCHLORIDE\LEVODOPA [Concomitant]
     Active Substance: BENSERAZIDE HYDROCHLORIDE\LEVODOPA
     Indication: Product used for unknown indication
     Dosage: MODOPAR DISP 125?CONTINUOUS TREATMENT
     Dates: start: 20250702
  14. ROPINIROLE HYDROCHLORIDE [Concomitant]
     Active Substance: ROPINIROLE HYDROCHLORIDE
     Indication: Product used for unknown indication
     Dosage: CONTINUOUS TREATMENT?REQUIP LP 4 MG
     Dates: start: 20231108, end: 20250625
  15. ROPINIROLE HYDROCHLORIDE [Concomitant]
     Active Substance: ROPINIROLE HYDROCHLORIDE
     Indication: Product used for unknown indication
     Dosage: CONTINUOUS TREATMENT?REQUIP LP 4 MG
     Dates: start: 20250625
  16. SIMVASTATIN [Concomitant]
     Active Substance: SIMVASTATIN
     Indication: Product used for unknown indication
  17. DESONIDE [Concomitant]
     Active Substance: DESONIDE
     Indication: Product used for unknown indication
  18. SILODOSIN [Concomitant]
     Active Substance: SILODOSIN
     Indication: Product used for unknown indication
  19. AVODART [Concomitant]
     Active Substance: DUTASTERIDE
     Indication: Product used for unknown indication
  20. FOLIC ACID [Concomitant]
     Active Substance: FOLIC ACID
     Indication: Product used for unknown indication
     Dates: start: 20250620
  21. VITAMIN B12 [Concomitant]
     Active Substance: CYANOCOBALAMIN
     Indication: Product used for unknown indication
     Dates: start: 20250620

REACTIONS (1)
  - Polyradiculoneuropathy [Not Recovered/Not Resolved]

NARRATIVE: CASE EVENT DATE: 20251013
